FAERS Safety Report 6181028-0 (Version None)
Quarter: 2009Q2

REPORT INFORMATION
  Report Type: 
  Country: None (occurrence: None)
  Receive Date: 20090506
  Receipt Date: 20090427
  Transmission Date: 20091009
  Serious: Yes (Other)
  Sender: FDA-Public Use
  Company Number: FR-ELI_LILLY_AND_COMPANY-FR200904006011

PATIENT
  Sex: Female

DRUGS (5)
  1. PROZAC [Suspect]
     Indication: DEPRESSION
     Route: 048
     Dates: start: 19900101, end: 19950101
  2. ISOMERIDE [Concomitant]
     Indication: WEIGHT CONTROL
     Dosage: 15 MG, UNK
     Route: 048
     Dates: end: 19890101
  3. MEDIATOR [Concomitant]
     Indication: WEIGHT CONTROL
     Dosage: 150 MG, UNK
     Route: 048
     Dates: end: 19890101
  4. MEDIATOR [Concomitant]
     Dosage: 150 MG, UNK
     Route: 048
     Dates: start: 19990101, end: 20000101
  5. MEDIATOR [Concomitant]
     Dosage: 150 MG, UNK
     Route: 048
     Dates: end: 20040101

REACTIONS (4)
  - AORTIC VALVE DISEASE [None]
  - ATRIAL FIBRILLATION [None]
  - MITRAL VALVE DISEASE [None]
  - TRICUSPID VALVE INCOMPETENCE [None]
